FAERS Safety Report 4914562-9 (Version None)
Quarter: 2006Q1

REPORT INFORMATION
  Report Type: 
  Country: None (occurrence: None)
  Receive Date: 20060216
  Receipt Date: 20060105
  Transmission Date: 20060701
  Serious: Yes (Hospitalization)
  Sender: FDA-Public Use
  Company Number: US-MERCK-0601USA00601

PATIENT
  Age: 72 Year
  Sex: Female
  Weight: 75 kg

DRUGS (3)
  1. VIOXX [Suspect]
     Route: 048
     Dates: start: 20010101, end: 20040101
  2. LASIX [Concomitant]
     Route: 065
  3. LIPITOR [Concomitant]
     Route: 065

REACTIONS (13)
  - BURSITIS [None]
  - CEREBRAL ISCHAEMIA [None]
  - CEREBROVASCULAR ACCIDENT [None]
  - DIZZINESS [None]
  - FALL [None]
  - FEELING ABNORMAL [None]
  - GASTROOESOPHAGEAL REFLUX DISEASE [None]
  - HYPERTENSION [None]
  - MICROANGIOPATHY [None]
  - OCCULT BLOOD POSITIVE [None]
  - OSTEOARTHRITIS [None]
  - STRESS INCONTINENCE [None]
  - URINARY TRACT INFECTION [None]
